FAERS Safety Report 4966160-9 (Version None)
Quarter: 2006Q2

REPORT INFORMATION
  Report Type: 
  Country: None (occurrence: None)
  Receive Date: 20060407
  Receipt Date: 20060406
  Transmission Date: 20061013
  Serious: Yes (Other)
  Sender: FDA-Public Use
  Company Number: US-GLAXOSMITHKLINE-A0600713A

PATIENT
  Age: 42 Year
  Sex: Male

DRUGS (4)
  1. COMMIT [Suspect]
     Dosage: 4MG NINE TIMES PER DAY
     Dates: start: 20060404
  2. RISPERIDONE [Concomitant]
  3. BUPROPION HCL [Concomitant]
  4. TOPIRAMATE [Concomitant]

REACTIONS (3)
  - DIARRHOEA [None]
  - GASTRIC DISORDER [None]
  - RECTAL HAEMORRHAGE [None]
